FAERS Safety Report 18385452 (Version 7)
Quarter: 2024Q4

REPORT INFORMATION
  Report Type: Report from Study
  Country: US (occurrence: US)
  Receive Date: 20201015
  Receipt Date: 20241225
  Transmission Date: 20250115
  Serious: Yes (Other)
  Sender: TAKEDA
  Company Number: US-SHIRE-US202033493

PATIENT
  Age: 65 Year
  Sex: Female

DRUGS (5)
  1. VONICOG ALFA [Suspect]
     Active Substance: VONICOG ALFA
     Indication: Haemorrhage
     Dosage: 705 INTERNATIONAL UNIT
  2. VONICOG ALFA [Suspect]
     Active Substance: VONICOG ALFA
     Dosage: 2400 INTERNATIONAL UNIT
  3. VONICOG ALFA [Suspect]
     Active Substance: VONICOG ALFA
     Dosage: 700 INTERNATIONAL UNIT
  4. VONICOG ALFA [Suspect]
     Active Substance: VONICOG ALFA
     Dosage: 2400 INTERNATIONAL UNIT
  5. VONICOG ALFA [Suspect]
     Active Substance: VONICOG ALFA
     Dosage: 2280 INTERNATIONAL UNIT

REACTIONS (5)
  - Pneumonia [Unknown]
  - Epistaxis [Unknown]
  - Burning sensation [Unknown]
  - Fall [Unknown]
  - Dizziness [Unknown]

NARRATIVE: CASE EVENT DATE: 20201006
